FAERS Safety Report 6829379-8 (Version None)
Quarter: 2010Q3

REPORT INFORMATION
  Report Type: 
  Country: None (occurrence: None)
  Receive Date: 20100709
  Receipt Date: 20070304
  Transmission Date: 20110219
  Serious: No
  Sender: FDA-Public Use
  Company Number: US-PFIZER INC-2007017299

PATIENT
  Sex: Female
  Weight: 61.69 kg

DRUGS (16)
  1. CHANTIX [Suspect]
     Indication: SMOKING CESSATION THERAPY
     Dates: start: 20070101
  2. DIAZEPAM [Concomitant]
  3. TYLENOL W/ CODEINE NO. 3 [Concomitant]
     Indication: ARTHRALGIA
  4. TYLENOL W/ CODEINE NO. 3 [Concomitant]
     Indication: BACK PAIN
  5. SUMATRIPTAN SUCCINATE (IMITREX) [Concomitant]
     Indication: HEADACHE
  6. SPIRIVA [Concomitant]
  7. ADVAIR DISKUS 100/50 [Concomitant]
  8. NEXIUM [Concomitant]
     Indication: ULCER
  9. METOCLOPRAMIDE [Concomitant]
  10. MYLANTA [Concomitant]
  11. PROMETHAZINE [Concomitant]
  12. CALCIUM CARBONATE [Concomitant]
  13. QUININE SULFATE [Concomitant]
     Indication: MUSCLE SPASMS
  14. ACTIVELLA [Concomitant]
  15. ALBUTEROL [Concomitant]
  16. OXYGEN [Concomitant]

REACTIONS (2)
  - JOINT SWELLING [None]
  - OEDEMA PERIPHERAL [None]
